FAERS Safety Report 17262319 (Version 15)
Quarter: 2025Q2

REPORT INFORMATION
  Report Type: Spontaneous
  Country: US (occurrence: US)
  Receive Date: 20200113
  Receipt Date: 20250410
  Transmission Date: 20250716
  Serious: No
  Sender: VERTEX
  Company Number: US-VERTEX PHARMACEUTICALS-2020-000091

PATIENT
  Sex: Female
  Weight: 70 kg

DRUGS (28)
  1. TRIKAFTA [Suspect]
     Active Substance: ELEXACAFTOR\IVACAFTOR\TEZACAFTOR
     Indication: Cystic fibrosis
     Dosage: 2 ORANGE TABLETS IN THE MORNING AND TAKE 1 BLUE TABLET IN THE EVENING
     Route: 048
     Dates: start: 20191204, end: 20200220
  2. TRIKAFTA [Suspect]
     Active Substance: ELEXACAFTOR\IVACAFTOR\TEZACAFTOR
     Dosage: 1 ORANGE TAB IN AM AND 1/2 BLUE TAB IN PM
     Route: 048
     Dates: start: 20211019
  3. TRIKAFTA [Suspect]
     Active Substance: ELEXACAFTOR\IVACAFTOR\TEZACAFTOR
     Dosage: 1 ORANGE TAB IN AM AND NO BLUE TAB IN PM
     Route: 048
  4. TRIKAFTA [Suspect]
     Active Substance: ELEXACAFTOR\IVACAFTOR\TEZACAFTOR
     Dosage: PM PILL
     Route: 048
     Dates: start: 202110
  5. TRIKAFTA [Suspect]
     Active Substance: ELEXACAFTOR\IVACAFTOR\TEZACAFTOR
     Route: 048
     Dates: end: 20220408
  6. AZTREONAM LYSINE [Suspect]
     Active Substance: AZTREONAM LYSINE
     Indication: Cystic fibrosis
     Dosage: (75 MILLIGRAM), TID
  7. AZTREONAM LYSINE [Suspect]
     Active Substance: AZTREONAM LYSINE
     Indication: Pseudomonas infection
  8. CAYSTON [Concomitant]
     Active Substance: AZTREONAM
  9. PERTZYE [Concomitant]
     Active Substance: PANCRELIPASE AMYLASE\PANCRELIPASE LIPASE\PANCRELIPASE PROTEASE
  10. PULMOZYME [Concomitant]
     Active Substance: DORNASE ALFA
  11. SODIUM CHLORIDE [Concomitant]
     Active Substance: SODIUM CHLORIDE
  12. ADVAIR HFA [Concomitant]
     Active Substance: FLUTICASONE PROPIONATE\SALMETEROL XINAFOATE
  13. ALBUTEROL [Concomitant]
     Active Substance: ALBUTEROL
  14. AZITHROMYCIN [Concomitant]
     Active Substance: AZITHROMYCIN
  15. BUDESONIDE [Concomitant]
     Active Substance: BUDESONIDE
  16. COD LIVER OIL [Concomitant]
     Active Substance: COD LIVER OIL
  17. CULTURELLE [Concomitant]
     Active Substance: LACTOBACILLUS RHAMNOSUS
  18. FLONASE [Concomitant]
     Active Substance: FLUTICASONE PROPIONATE
  19. GLUTATHIONE [Concomitant]
     Active Substance: GLUTATHIONE
  20. IBUPROFEN [Concomitant]
     Active Substance: IBUPROFEN
  21. LOSARTAN [Concomitant]
     Active Substance: LOSARTAN
  22. OMEPRAZOLE [Concomitant]
     Active Substance: OMEPRAZOLE
  23. PERFOROMIST [Concomitant]
     Active Substance: FORMOTEROL FUMARATE DIHYDRATE
  24. PROAIR HFA [Concomitant]
     Active Substance: ALBUTEROL SULFATE
  25. RANITIDINE [Concomitant]
     Active Substance: RANITIDINE
  26. URSODIOL [Concomitant]
     Active Substance: URSODIOL
  27. VITAMIN C [Concomitant]
     Active Substance: ASCORBIC ACID
  28. CALCIUM\MAGNESIUM [Concomitant]
     Active Substance: CALCIUM\MAGNESIUM

REACTIONS (27)
  - Anxiety [Unknown]
  - Insomnia [Recovered/Resolved]
  - Brain fog [Unknown]
  - Sleep disorder [Recovered/Resolved]
  - Middle insomnia [Not Recovered/Not Resolved]
  - Terminal insomnia [Not Recovered/Not Resolved]
  - Diarrhoea [Unknown]
  - Abdominal discomfort [Not Recovered/Not Resolved]
  - Fatigue [Recovered/Resolved]
  - Headache [Not Recovered/Not Resolved]
  - Agitation [Unknown]
  - Bowel movement irregularity [Not Recovered/Not Resolved]
  - Mood altered [Recovered/Resolved]
  - Nausea [Not Recovered/Not Resolved]
  - Irritability [Not Recovered/Not Resolved]
  - Anger [Not Recovered/Not Resolved]
  - Eructation [Unknown]
  - Depression [Unknown]
  - Depressed mood [Not Recovered/Not Resolved]
  - Asthenia [Not Recovered/Not Resolved]
  - Vulvovaginal candidiasis [Unknown]
  - Candida infection [Unknown]
  - Nervous system disorder [Not Recovered/Not Resolved]
  - Night sweats [Unknown]
  - Crying [Not Recovered/Not Resolved]
  - Paranasal sinus hypersecretion [Unknown]
  - Anosmia [Not Recovered/Not Resolved]

NARRATIVE: CASE EVENT DATE: 20200101
